FAERS Safety Report 12165643 (Version 2)
Quarter: 2016Q2

REPORT INFORMATION
  Report Type: Report from Study
  Country: ID (occurrence: ID)
  Receive Date: 20160309
  Receipt Date: 20160429
  Transmission Date: 20160815
  Serious: Yes (Death, Life-Threatening, Hospitalization, Other)
  Sender: FDA-Public Use
  Company Number: ID-BAYER-2016-010240

PATIENT
  Age: 65 Year
  Sex: Male

DRUGS (2)
  1. NEXAVAR [Suspect]
     Active Substance: SORAFENIB
     Indication: HEPATOCELLULAR CARCINOMA
     Dosage: 200 MG, BID
     Route: 048
     Dates: start: 20151221
  2. NEXAVAR [Suspect]
     Active Substance: SORAFENIB
     Indication: HEPATOCELLULAR CARCINOMA
     Dosage: 200 MG, BID
     Route: 048
     Dates: start: 20160111, end: 20160303

REACTIONS (15)
  - Asthenia [Fatal]
  - Odynophagia [Not Recovered/Not Resolved]
  - Haemoglobin decreased [Recovering/Resolving]
  - Epistaxis [Not Recovered/Not Resolved]
  - Haematochezia [Not Recovered/Not Resolved]
  - Abdominal pain upper [Not Recovered/Not Resolved]
  - Dysphagia [Not Recovered/Not Resolved]
  - Diarrhoea [Not Recovered/Not Resolved]
  - Eating disorder [Not Recovered/Not Resolved]
  - Cachexia [None]
  - Weight decreased [Fatal]
  - Weight decreased [None]
  - Activities of daily living impaired [Not Recovered/Not Resolved]
  - Depressed level of consciousness [Fatal]
  - Dysarthria [None]

NARRATIVE: CASE EVENT DATE: 201601
